FAERS Safety Report 14032342 (Version 1)
Quarter: 2017Q4

REPORT INFORMATION
  Report Type: Spontaneous
  Country: US (occurrence: US)
  Receive Date: 20171003
  Receipt Date: 20171003
  Transmission Date: 20180321
  Serious: No
  Sender: FDA-Public Use
  Company Number: US-SHIRE-US201717953

PATIENT

DRUGS (11)
  1. LISINOPRIL. [Concomitant]
     Active Substance: LISINOPRIL
     Indication: PRODUCT USED FOR UNKNOWN INDICATION
  2. OMEPRAZOLE                         /00661202/ [Concomitant]
     Indication: PRODUCT USED FOR UNKNOWN INDICATION
  3. XIIDRA [Suspect]
     Active Substance: LIFITEGRAST
     Indication: DRY EYE
     Dosage: 1 GTT, 2X/DAY:BID
     Route: 047
  4. TROGLITAZONE [Concomitant]
     Active Substance: TROGLITAZONE
     Indication: DIABETES MELLITUS
  5. PROPAFENONE. [Concomitant]
     Active Substance: PROPAFENONE
     Indication: SUPRAVENTRICULAR TACHYCARDIA
  6. DILTIAZEM                          /00489702/ [Concomitant]
     Active Substance: DILTIAZEM
     Indication: PRODUCT USED FOR UNKNOWN INDICATION
  7. TRAMADOL                           /00599202/ [Concomitant]
     Active Substance: TRAMADOL
     Indication: PRODUCT USED FOR UNKNOWN INDICATION
  8. SERTRALINE [Concomitant]
     Active Substance: SERTRALINE HYDROCHLORIDE
     Indication: PRODUCT USED FOR UNKNOWN INDICATION
  9. METFORMIN [Concomitant]
     Active Substance: METFORMIN HYDROCHLORIDE
     Indication: PRODUCT USED FOR UNKNOWN INDICATION
  10. PRAVASTATIN                        /00880402/ [Concomitant]
     Active Substance: PRAVASTATIN SODIUM
     Indication: PRODUCT USED FOR UNKNOWN INDICATION
  11. GABAPENTIN. [Concomitant]
     Active Substance: GABAPENTIN
     Indication: PRODUCT USED FOR UNKNOWN INDICATION

REACTIONS (5)
  - Dry eye [Unknown]
  - Impaired driving ability [Unknown]
  - Ocular discomfort [Unknown]
  - Vision blurred [Unknown]
  - Instillation site reaction [Unknown]
